FAERS Safety Report 14459716 (Version 1)
Quarter: 2018Q1

REPORT INFORMATION
  Report Type: Spontaneous
  Country: FR (occurrence: FR)
  Receive Date: 20180130
  Receipt Date: 20180130
  Transmission Date: 20180509
  Serious: Yes (Hospitalization, Other)
  Sender: FDA-Public Use
  Company Number: FR-ABBVIE-18S-056-2234948-00

PATIENT
  Age: 67 Year
  Sex: Female

DRUGS (8)
  1. PARACETAMOL [Suspect]
     Active Substance: ACETAMINOPHEN
     Indication: PAIN
     Dosage: UNK
     Route: 048
     Dates: start: 20171122, end: 20171130
  2. REMIFENTANIL HYDROCLORIDE [Suspect]
     Active Substance: REMIFENTANIL HYDROCHLORIDE
     Indication: PAIN
     Dosage: UNK
     Route: 040
     Dates: start: 20171122, end: 20171122
  3. CEFAZOLINE [Suspect]
     Active Substance: CEFAZOLIN SODIUM
     Indication: PROPHYLAXIS
     Dosage: UNK
     Route: 042
     Dates: start: 20171122, end: 20171122
  4. KETAMINE [Suspect]
     Active Substance: KETAMINE
     Indication: ANAESTHESIA
     Dosage: UNK
     Route: 040
     Dates: start: 20171122, end: 20171122
  5. NEFOPAM [Suspect]
     Active Substance: NEFOPAM
     Indication: ANAESTHESIA
     Dosage: UNK
     Route: 040
     Dates: start: 20171122, end: 20171122
  6. SEVORANE [Suspect]
     Active Substance: SEVOFLURANE
     Indication: ANAESTHESIA
     Dosage: UNK
     Route: 055
  7. CISATRACURIUM. [Suspect]
     Active Substance: CISATRACURIUM
     Indication: ANAESTHESIA
     Dosage: UNK
     Route: 040
     Dates: start: 20171122, end: 20171122
  8. MORPHINE [Suspect]
     Active Substance: MORPHINE
     Indication: PAIN
     Dosage: UNK
     Route: 042
     Dates: start: 20171122, end: 20171122

REACTIONS (2)
  - Hepatocellular injury [Recovering/Resolving]
  - Gamma-glutamyltransferase increased [Recovering/Resolving]

NARRATIVE: CASE EVENT DATE: 20171129
